FAERS Safety Report 17166239 (Version 1)
Quarter: 2019Q4

REPORT INFORMATION
  Report Type: Spontaneous
  Country: US (occurrence: US)
  Receive Date: 20191217
  Receipt Date: 20191217
  Transmission Date: 20200122
  Serious: Yes (Hospitalization, Other)
  Sender: FDA-Public Use
  Company Number: None

PATIENT
  Age: 21 Year
  Sex: Female

DRUGS (3)
  1. LANSOPRAZOLE 30MG DR R CAPSULE [Concomitant]
     Dates: start: 20190916
  2. TADALAFIL. [Suspect]
     Active Substance: TADALAFIL
     Indication: PULMONARY ARTERIAL HYPERTENSION
     Route: 048
     Dates: start: 20170721
  3. DIGOXIN 0.125MG TABLET [Concomitant]
     Dates: start: 20190901

REACTIONS (2)
  - Product dose omission [None]
  - Dyspnoea [None]

NARRATIVE: CASE EVENT DATE: 20191214
